FAERS Safety Report 5571406-2 (Version None)
Quarter: 2007Q4

REPORT INFORMATION
  Report Type: 
  Country: None (occurrence: None)
  Receive Date: 20071221
  Receipt Date: 20071016
  Transmission Date: 20080405
  Serious: No
  Sender: FDA-Public Use
  Company Number: A0688028A

PATIENT
  Age: 76 Year
  Sex: Female

DRUGS (7)
  1. FLONASE [Suspect]
     Dosage: 2PUFF AT NIGHT
     Route: 045
     Dates: start: 20050101
  2. FLUTICASONE PROPIONATE [Suspect]
     Dosage: 2SPR AT NIGHT
     Route: 045
     Dates: start: 20070401
  3. COREG CR [Concomitant]
  4. BENICAR HCT [Concomitant]
  5. ADVIL LIQUI-GELS [Concomitant]
  6. FUROSEMIDE [Concomitant]
  7. WARFARIN SODIUM [Concomitant]

REACTIONS (2)
  - DRUG INEFFECTIVE [None]
  - SOMNOLENCE [None]
